FAERS Safety Report 6250357-4 (Version None)
Quarter: 2009Q2

REPORT INFORMATION
  Report Type: 
  Country: None (occurrence: None)
  Receive Date: 20090626
  Receipt Date: 20090626
  Transmission Date: 20091009
  Serious: Yes (Hospitalization)
  Sender: FDA-Public Use
  Company Number: None

PATIENT
  Sex: Female
  Weight: 52.6 kg

DRUGS (13)
  1. FLUDARABINE PHOSPHATE [Suspect]
  2. LASIX [Concomitant]
  3. HYDROMORPHONE HCL (DILAUDID) [Concomitant]
  4. ATIVAN [Concomitant]
  5. NEXIUM [Concomitant]
  6. FK506 (PROGRAF, TACROLIMUS) [Concomitant]
  7. CLINDAMYCIN PHOSPHATE [Concomitant]
  8. ZOLOFT [Concomitant]
  9. LOPERAMIDE HCL (IMODIUM) [Concomitant]
  10. DIFLUCAN [Concomitant]
  11. ALDACTONE [Concomitant]
  12. ZOVIRAX [Concomitant]
  13. SINEMET [Concomitant]

REACTIONS (8)
  - ABDOMINAL PAIN [None]
  - BACTERIAL INFECTION [None]
  - CATHETER RELATED INFECTION [None]
  - CENTRAL LINE INFECTION [None]
  - CLOSTRIDIAL INFECTION [None]
  - CULTURE STOOL POSITIVE [None]
  - DIARRHOEA [None]
  - NAUSEA [None]
